FAERS Safety Report 23882285 (Version 1)
Quarter: 2024Q2

REPORT INFORMATION
  Report Type: Other
  Country: PK (occurrence: None)
  Receive Date: 20240522
  Receipt Date: 20240522
  Transmission Date: 20240716
  Serious: Yes (Death)
  Sender: FDA-Public Use
  Company Number: PK-ROCHE-3566130

PATIENT
  Age: 39 Year
  Sex: Female

DRUGS (1)
  1. HERCEPTIN [Suspect]
     Active Substance: TRASTUZUMAB
     Indication: Breast cancer metastatic
     Dosage: FOR 18 CYCLES AND TOTAL 8 CYCLES WERE RECEIVED
     Route: 042
     Dates: start: 20230613, end: 20231128

REACTIONS (1)
  - Metastasis [Fatal]

NARRATIVE: CASE EVENT DATE: 20231212
